FAERS Safety Report 5466283-4 (Version None)
Quarter: 2007Q3

REPORT INFORMATION
  Report Type: 
  Country: None (occurrence: None)
  Receive Date: 20070919
  Receipt Date: 20070904
  Transmission Date: 20080115
  Serious: Yes (Other)
  Sender: FDA-Public Use
  Company Number: GXKR2007GB07745

PATIENT
  Age: 82 Year
  Sex: Male
  Weight: 93.7 kg

DRUGS (11)
  1. AMIODARONE HCL [Suspect]
     Indication: ATRIAL FIBRILLATION
     Dosage: 200 MG, ORAL
     Route: 048
  2. ACETYLSALICYLIC ACID SRT [Concomitant]
  3. CITALOPRAM HYDROBROMIDE [Concomitant]
  4. FUROSEMIDE [Concomitant]
  5. GLYCERYL TRINITRATE (GLYCERYL TRINITRATE) [Concomitant]
  6. IPRATROPIUM BROMIDE [Concomitant]
  7. LANSOPRAZOLE [Concomitant]
  8. ACETAMINOPHEN [Concomitant]
  9. PERINDOPRIL ERBUMINE [Concomitant]
  10. SALBUTAMOL (SALBUTAMOL) [Concomitant]
  11. ZOPICLONE (ZOPICLONE) [Concomitant]

REACTIONS (1)
  - CYANOPSIA [None]
